FAERS Safety Report 6407842-1 (Version None)
Quarter: 2009Q4

REPORT INFORMATION
  Report Type: 
  Country: None (occurrence: None)
  Receive Date: 20091015
  Receipt Date: 20091008
  Transmission Date: 20100525
  Serious: Yes (Death)
  Sender: FDA-Public Use
  Company Number: 007576

PATIENT
  Age: 42 Year
  Sex: Male

DRUGS (18)
  1. SAMSCA [Suspect]
     Indication: HYPONATRAEMIA
     Dosage: 15 MG, DAILY, DOSE, ORAL
     Route: 048
     Dates: start: 20090827, end: 20090904
  2. BUMETANIDE [Concomitant]
  3. DOCUSATE (DOCUSATE) [Concomitant]
  4. FORMOTEROL FUMARATE (FORMOTEROL FUMARATE) [Concomitant]
  5. IPRATROPIUM BROMIDE [Concomitant]
  6. METOLAZONE [Concomitant]
  7. MOMETASONE FUROATE [Concomitant]
  8. ENSURE (AMINO ACIDS NOS, MINERALS NOS, VITAMINS NOS) [Concomitant]
  9. POLYETHYLENE GLYCOL (MACROGOL) [Concomitant]
  10. SERTRALINE HYDROCHLORIDE [Concomitant]
  11. SIMVASTATIN [Concomitant]
  12. ALPRAZOLAM [Concomitant]
  13. TRAZODONE HCL [Concomitant]
  14. POTASSIUM CHLORIDE [Concomitant]
  15. ASPIRIN [Concomitant]
  16. DOBUTAMINE (DOBUTAMINE) [Concomitant]
  17. MULTIVITAMINS (ASCORBIC ACID, ERGOCALCIFEROL, FOLIC ACID, NICOTINAMIDE [Concomitant]
  18. VITAMIN E [Concomitant]

REACTIONS (4)
  - BLOOD SODIUM DECREASED [None]
  - CARDIAC FAILURE [None]
  - HYPOKALAEMIA [None]
  - SUDDEN DEATH [None]
